FAERS Safety Report 6525827-1 (Version None)
Quarter: 2010Q1

REPORT INFORMATION
  Report Type: 
  Country: None (occurrence: None)
  Receive Date: 20100104
  Receipt Date: 20091225
  Transmission Date: 20100710
  Serious: Yes (Other)
  Sender: FDA-Public Use
  Company Number: B0607354A

PATIENT
  Sex: Male

DRUGS (2)
  1. RELENZA [Suspect]
     Indication: INFLUENZA
     Dosage: 2BLS THREE TIMES PER DAY
     Route: 055
     Dates: start: 20091112, end: 20091113
  2. HOKUNALIN [Concomitant]
     Indication: COUGH
     Dosage: 1MG PER DAY
     Route: 062
     Dates: start: 20091112

REACTIONS (1)
  - ASTHMA [None]
